FAERS Safety Report 23574825 (Version 3)
Quarter: 2024Q2

REPORT INFORMATION
  Report Type: Spontaneous
  Country: US (occurrence: None)
  Receive Date: 20240228
  Receipt Date: 20240417
  Transmission Date: 20240716
  Serious: Yes (Other)
  Sender: FDA-Public Use
  Company Number: 2024A048059

PATIENT
  Sex: Female

DRUGS (1)
  1. SAPHNELO [Suspect]
     Active Substance: ANIFROLUMAB\ANIFROLUMAB-FNIA
     Indication: Systemic lupus erythematosus
     Dosage: UNKNOWN
     Dates: start: 20231116

REACTIONS (26)
  - Drug interaction [Unknown]
  - Neoplasm malignant [Unknown]
  - Weight decreased [Unknown]
  - Asthenia [Unknown]
  - Blood iron decreased [Unknown]
  - Cystitis [Unknown]
  - Sinusitis [Unknown]
  - Tooth infection [Unknown]
  - COVID-19 [Unknown]
  - Dizziness [Unknown]
  - Anxiety [Unknown]
  - Renal disorder [Unknown]
  - Palpitations [Unknown]
  - Headache [Unknown]
  - Nausea [Unknown]
  - Insomnia [Unknown]
  - Blood pressure decreased [Not Recovered/Not Resolved]
  - Fatigue [Unknown]
  - Cardiac disorder [Unknown]
  - Nervous system disorder [Unknown]
  - Hypersensitivity [Unknown]
  - Dyspnoea [Not Recovered/Not Resolved]
  - Headache [Not Recovered/Not Resolved]
  - Blood pressure fluctuation [Unknown]
  - Feeling abnormal [Unknown]
  - Incorrect dose administered [Unknown]
